FAERS Safety Report 6307585-9 (Version None)
Quarter: 2009Q3

REPORT INFORMATION
  Report Type: 
  Country: None (occurrence: None)
  Receive Date: 20090813
  Receipt Date: 20090730
  Transmission Date: 20100115
  Serious: Yes (Other)
  Sender: FDA-Public Use
  Company Number: US-TEVA-FEI2009-1616

PATIENT
  Sex: Female
  Weight: 56.75 kg

DRUGS (1)
  1. PARAGARD T 380A [Suspect]
     Indication: CONTRACEPTION
     Dates: start: 20081209, end: 20090729

REACTIONS (5)
  - ABDOMINAL PAIN [None]
  - FEELING ABNORMAL [None]
  - INTRA-UTERINE CONTRACEPTIVE DEVICE EXPELLED [None]
  - OVARIAN CYST [None]
  - SHOULDER OPERATION [None]
